FAERS Safety Report 4448811-0 (Version None)
Quarter: 2004Q3

REPORT INFORMATION
  Report Type: 
  Country: None (occurrence: None)
  Receive Date: 20040909
  Receipt Date: 20040831
  Transmission Date: 20050211
  Serious: Yes (Hospitalization)
  Sender: FDA-Public Use
  Company Number: 2004UW17434

PATIENT
  Age: 15 Year
  Sex: Female

DRUGS (1)
  1. SEROQUEL [Suspect]
     Indication: BIPOLAR I DISORDER
     Dosage: 300 MG PO
     Route: 048
     Dates: end: 20040701

REACTIONS (5)
  - GASTROINTESTINAL MOTILITY DISORDER [None]
  - ILEUS [None]
  - IRRITABLE BOWEL SYNDROME [None]
  - TOXIC DILATATION OF COLON [None]
  - TREATMENT NONCOMPLIANCE [None]
